FAERS Safety Report 9812203 (Version 2)
Quarter: 2014Q1

REPORT INFORMATION
  Report Type: Spontaneous
  Country: US (occurrence: US)
  Receive Date: 20140112
  Receipt Date: 20140213
  Transmission Date: 20141002
  Serious: Yes (Other)
  Sender: FDA-Public Use
  Company Number: US-AMGEN-USASP2014001383

PATIENT
  Age: 66 Year
  Sex: Male
  Weight: 72.56 kg

DRUGS (8)
  1. ENBREL [Suspect]
     Indication: RHEUMATOID ARTHRITIS
     Dosage: 50 MG, QWK
     Route: 058
     Dates: end: 20131002
  2. ADVAIR [Concomitant]
     Dosage: UNK
  3. METHOTREXATE [Concomitant]
     Dosage: UNK
     Route: 048
  4. NEXIUM                             /01479303/ [Concomitant]
     Dosage: UNK
     Route: 048
  5. NIASPAN [Concomitant]
     Dosage: UNK
     Route: 048
  6. PROAIR                             /00139502/ [Concomitant]
     Dosage: UNK
  7. SIMVASTATIN [Concomitant]
     Dosage: UNK
     Route: 048
  8. BENICAR [Concomitant]
     Dosage: UNK
     Route: 048

REACTIONS (1)
  - Prostate cancer [Not Recovered/Not Resolved]
